FAERS Safety Report 4877913-X (Version None)
Quarter: 2006Q1

REPORT INFORMATION
  Report Type: 
  Country: None (occurrence: None)
  Receive Date: 20060110
  Receipt Date: 20060103
  Transmission Date: 20060701
  Serious: Yes (Hospitalization)
  Sender: FDA-Public Use
  Company Number: 2006002050

PATIENT
  Sex: Female

DRUGS (2)
  1. LYRICA [Suspect]
     Indication: TRIGEMINAL NEURALGIA
     Dosage: ORAL
     Route: 048
  2. CIPRALEX (ESCITALOPRAM) [Suspect]
     Indication: ILL-DEFINED DISORDER
     Dates: start: 20051201

REACTIONS (2)
  - PAIN [None]
  - RASH GENERALISED [None]
